FAERS Safety Report 15847557 (Version 1)
Quarter: 2019Q1

REPORT INFORMATION
  Report Type: Spontaneous
  Country: MT (occurrence: MT)
  Receive Date: 20190121
  Receipt Date: 20190121
  Transmission Date: 20190417
  Serious: Yes (Hospitalization)
  Sender: FDA-Public Use
  Company Number: MT-TEVA-2019-MT-1000876

PATIENT
  Age: 81 Year
  Sex: Female

DRUGS (2)
  1. QUETIAPINE. [Suspect]
     Active Substance: QUETIAPINE
     Indication: ABNORMAL BEHAVIOUR
     Route: 065
  2. BENDROFLUMETHIAZIDE [Concomitant]
     Active Substance: BENDROFLUMETHIAZIDE
     Indication: HYPERTENSION
     Route: 065

REACTIONS (5)
  - Malignant hypertension [Recovered/Resolved]
  - Microangiopathy [Recovered/Resolved]
  - Neuroleptic malignant syndrome [Recovered/Resolved]
  - Haemoglobinuria [Recovered/Resolved]
  - Intravascular haemolysis [Recovered/Resolved]
